FAERS Safety Report 5669378-5 (Version None)
Quarter: 2008Q1

REPORT INFORMATION
  Report Type: 
  Country: None (occurrence: None)
  Receive Date: 20080317
  Receipt Date: 20080307
  Transmission Date: 20080703
  Serious: Yes (Other)
  Sender: FDA-Public Use
  Company Number: PHHY2008JP02332

PATIENT
  Age: 61 Year
  Sex: Male

DRUGS (1)
  1. TEGRETOL [Suspect]
     Indication: TRIGEMINAL NEURALGIA
     Route: 048

REACTIONS (4)
  - CEREBROVASCULAR ARTERIOVENOUS MALFORMATION [None]
  - DRUG ERUPTION [None]
  - RADIOTHERAPY TO BRAIN [None]
  - SHUNT MALFUNCTION [None]
